FAERS Safety Report 6771028-1 (Version None)
Quarter: 2010Q2

REPORT INFORMATION
  Report Type: 
  Country: None (occurrence: None)
  Receive Date: 20100616
  Receipt Date: 20100602
  Transmission Date: 20101027
  Serious: Yes (Hospitalization, Other)
  Sender: FDA-Public Use
  Company Number: GB-RANBAXY-2010RR-34493

PATIENT
  Age: 56 Year
  Sex: Female

DRUGS (2)
  1. FLECAINIDE ACETATE [Suspect]
     Indication: ATRIAL FIBRILLATION
     Dosage: UNK
     Route: 048
  2. FLECAINIDE ACETATE [Suspect]
     Dosage: 50 MG, BID

REACTIONS (2)
  - ATRIAL FLUTTER [None]
  - TACHYCARDIA [None]
